FAERS Safety Report 6468260-3 (Version None)
Quarter: 2009Q4

REPORT INFORMATION
  Report Type: 
  Country: None (occurrence: None)
  Receive Date: 20091130
  Receipt Date: 20091116
  Transmission Date: 20100525
  Serious: No
  Sender: FDA-Public Use
  Company Number: 1-20638545

PATIENT
  Age: 7 Year
  Sex: Male

DRUGS (5)
  1. HYDROCORTISONE 1%-P CREAM [Suspect]
     Indication: RASH
     Dosage: ONCE, TOPICAL
     Route: 061
     Dates: start: 20091103, end: 20091103
  2. SINGULAIR [Concomitant]
  3. EPIPEN JR (EPINEPHRINE) [Concomitant]
  4. ALBUTEROL SULATE [Concomitant]
  5. ORAPRED (PREDNISOLONE) [Concomitant]

REACTIONS (2)
  - DRUG HYPERSENSITIVITY [None]
  - PRODUCT SUBSTITUTION ISSUE [None]
